FAERS Safety Report 7938423-6 (Version None)
Quarter: 2011Q4

REPORT INFORMATION
  Report Type: 
  Country: None (occurrence: None)
  Receive Date: 20111123
  Receipt Date: 20111109
  Transmission Date: 20120403
  Serious: Yes (Other)
  Sender: FDA-Public Use
  Company Number: US-WATSON-2011-18645

PATIENT
  Age: 16 Year
  Sex: Male

DRUGS (7)
  1. PROPOFOL [Suspect]
     Indication: ANAESTHESIA
     Dosage: 150 MG, SINGLE
     Route: 065
  2. GLYCOPYRROLATE                     /00196201/ [Suspect]
     Indication: ANAESTHESIA
     Dosage: 0.5 MG, SINGLE
     Route: 065
  3. FENTANYL-100 [Suspect]
     Indication: ANAESTHESIA
     Dosage: 100 UG, SINGLE
     Route: 065
  4. NITROUS OXIDE [Suspect]
     Indication: ANAESTHESIA
  5. ATRACURIUM BESYLATE [Suspect]
     Indication: ANAESTHESIA
     Dosage: 30 MG, SINGLE
     Route: 065
  6. SEVOFLURANE [Suspect]
     Indication: ANAESTHESIA
  7. NEOSTIGMINE [Suspect]
     Indication: ANAESTHESIA
     Dosage: 2.5 MG, SINGLE
     Route: 065

REACTIONS (3)
  - PULMONARY OEDEMA [None]
  - HYPOXIA [None]
  - LARYNGOSPASM [None]
